FAERS Safety Report 5506936-2 (Version None)
Quarter: 2007Q4

REPORT INFORMATION
  Report Type: 
  Country: None (occurrence: None)
  Receive Date: 20071105
  Receipt Date: 20071024
  Transmission Date: 20080405
  Serious: Yes (Other)
  Sender: FDA-Public Use
  Company Number: GB-PFIZER INC-2007081655

PATIENT
  Sex: Female
  Weight: 69.9 kg

DRUGS (1)
  1. CHAMPIX [Suspect]
     Indication: SMOKING CESSATION THERAPY
     Route: 048
     Dates: start: 20070824, end: 20070827

REACTIONS (3)
  - FATIGUE [None]
  - MALAISE [None]
  - RESPIRATORY DISORDER [None]
